FAERS Safety Report 4801684-6 (Version None)
Quarter: 2005Q4

REPORT INFORMATION
  Report Type: 
  Country: None (occurrence: None)
  Receive Date: 20051018
  Receipt Date: 20051014
  Transmission Date: 20060501
  Serious: Yes (Other)
  Sender: FDA-Public Use
  Company Number: US-GLAXOSMITHKLINE-A0578289A

PATIENT
  Age: 53 Year
  Sex: Female

DRUGS (2)
  1. FLONASE [Suspect]
     Dosage: 4SPR TWICE PER DAY
     Route: 045
     Dates: start: 20050927, end: 20050929
  2. RANITIDINE [Concomitant]

REACTIONS (1)
  - OPTIC NEURITIS [None]
